FAERS Safety Report 6077531-4 (Version None)
Quarter: 2009Q1

REPORT INFORMATION
  Report Type: 
  Country: None (occurrence: None)
  Receive Date: 20090211
  Receipt Date: 20090203
  Transmission Date: 20090719
  Serious: Yes (Other)
  Sender: FDA-Public Use
  Company Number: 6048052

PATIENT
  Age: 66 Year
  Sex: Male

DRUGS (5)
  1. BISOMERCK (5 MG) (BISOPROLOL FUMARATE) [Suspect]
     Indication: EXTRASYSTOLES
     Dosage: (2.5 MG) ORAL
     Route: 048
     Dates: start: 20010101
  2. BISOMERCK (5 MG) (BISOPROLOL FUMARATE) [Suspect]
     Indication: HYPERTENSION
     Dosage: (2.5 MG) ORAL
     Route: 048
     Dates: start: 20010101
  3. BISOMERCK (5 MG) (BISOPROLOL FUMARATE) [Suspect]
     Indication: EXTRASYSTOLES
     Dosage: (2.5 MG) ORAL
     Route: 048
     Dates: start: 20020101
  4. BISOMERCK (5 MG) (BISOPROLOL FUMARATE) [Suspect]
     Indication: HYPERTENSION
     Dosage: (2.5 MG) ORAL
     Route: 048
     Dates: start: 20020101
  5. BISOPROLOL FUMARATE [Concomitant]

REACTIONS (4)
  - DYSPNOEA [None]
  - PRURITUS [None]
  - SWELLING [None]
  - URTICARIA [None]
